FAERS Safety Report 14161753 (Version 1)
Quarter: 2017Q4

REPORT INFORMATION
  Report Type: Spontaneous
  Country: US (occurrence: US)
  Receive Date: 20171105
  Receipt Date: 20171105
  Transmission Date: 20180321
  Serious: Yes (Disabling)
  Sender: FDA-Public Use
  Company Number: None

PATIENT
  Age: 36 Year
  Sex: Female
  Weight: 87.75 kg

DRUGS (1)
  1. WELLBUTRIN XL [Suspect]
     Active Substance: BUPROPION HYDROCHLORIDE
     Indication: DEPRESSION
     Dosage: ?          QUANTITY:90 TABLET;?
     Route: 048

REACTIONS (3)
  - Mental impairment [None]
  - Drug ineffective [None]
  - Depression [None]

NARRATIVE: CASE EVENT DATE: 20171105
